FAERS Safety Report 8876292 (Version 2)
Quarter: 2013Q1

REPORT INFORMATION
  Report Type: Spontaneous
  Country: GB (occurrence: GB)
  Receive Date: 20121023
  Receipt Date: 20130125
  Transmission Date: 20140127
  Serious: Yes (Other)
  Sender: FDA-Public Use
  Company Number: PHHY2012GB093014

PATIENT
  Age: 48 Year
  Sex: Female

DRUGS (3)
  1. LAMOTRIGINE [Suspect]
  2. LAMOTRIGINE [Suspect]
     Route: 065
  3. AMOXIL [Suspect]
     Dates: start: 2011

REACTIONS (2)
  - Convulsion [Recovered/Resolved]
  - Drug interaction [Unknown]
